FAERS Safety Report 8101877-9 (Version None)
Quarter: 2012Q1

REPORT INFORMATION
  Report Type: 
  Country: None (occurrence: None)
  Receive Date: 20120131
  Receipt Date: 20120127
  Transmission Date: 20120608
  Serious: Yes (Other)
  Sender: FDA-Public Use
  Company Number: PHHY2012JP007334

PATIENT

DRUGS (2)
  1. EXELON [Suspect]
     Dosage: 4.5 MG\24H
     Route: 062
     Dates: start: 20111205
  2. EXELON [Suspect]
     Dosage: 4.5 MG\24H
     Route: 062
     Dates: start: 20111211

REACTIONS (2)
  - ABDOMINAL PAIN [None]
  - CHOLECYSTITIS ACUTE [None]
